FAERS Safety Report 4467116-5 (Version None)
Quarter: 2004Q4

REPORT INFORMATION
  Report Type: 
  Country: None (occurrence: None)
  Receive Date: 20041006
  Receipt Date: 20040924
  Transmission Date: 20050328
  Serious: Yes (Death, Hospitalization)
  Sender: FDA-Public Use
  Company Number: IT-BRISTOL-MYERS SQUIBB COMPANY-12712188

PATIENT
  Age: 90 Year
  Sex: Female

DRUGS (1)
  1. COUMADIN [Suspect]
     Indication: ATRIAL FIBRILLATION
     Route: 048
     Dates: start: 20020101, end: 20040902

REACTIONS (6)
  - COMA [None]
  - DEATH [None]
  - GENERAL PHYSICAL HEALTH DETERIORATION [None]
  - INTERNATIONAL NORMALISED RATIO INCREASED [None]
  - RESPIRATORY FAILURE [None]
  - SUBDURAL HAEMATOMA [None]
